FAERS Safety Report 14762583 (Version 1)
Quarter: 2018Q2

REPORT INFORMATION
  Report Type: Spontaneous
  Country: US (occurrence: US)
  Receive Date: 20180409
  Receipt Date: 20180409
  Transmission Date: 20180711
  Serious: Yes (Disabling)
  Sender: FDA-Public Use
  Company Number: None

PATIENT
  Age: 40 Year
  Sex: Female
  Weight: 105.75 kg

DRUGS (14)
  1. MULTIVITAMIN [Concomitant]
     Active Substance: VITAMINS
  2. RELPAX [Concomitant]
     Active Substance: ELETRIPTAN HYDROBROMIDE
  3. ZOFRAN [Concomitant]
     Active Substance: ONDANSETRON HYDROCHLORIDE
  4. TRAMADOL. [Concomitant]
     Active Substance: TRAMADOL
  5. OSCAL [Concomitant]
     Active Substance: CALCIUM CARBONATE
  6. TIZANIDINE. [Concomitant]
     Active Substance: TIZANIDINE
  7. GAVISCON EXTRA STRENGTH [Concomitant]
     Active Substance: ALUMINUM HYDROXIDE\MAGNESIUM CARBONATE
  8. BOTOX [Suspect]
     Active Substance: ONABOTULINUMTOXINA
     Indication: MIGRAINE
     Dosage: SUBCUTANEOUS ONCE EVERY 3 MONTH
     Route: 058
     Dates: start: 20180328
  9. FLUOXETINE [Concomitant]
     Active Substance: FLUOXETINE HYDROCHLORIDE
  10. HAIR, SKINX + NAIL GUMMIES [Concomitant]
  11. AMITRIPTYLINE [Concomitant]
     Active Substance: AMITRIPTYLINE
  12. OMEPRAZOLE. [Concomitant]
     Active Substance: OMEPRAZOLE
  13. PROAIR INHALER [Concomitant]
     Active Substance: ALBUTEROL SULFATE
  14. BIOTIN [Concomitant]
     Active Substance: BIOTIN

REACTIONS (3)
  - Migraine [None]
  - Anxiety [None]
  - Tremor [None]

NARRATIVE: CASE EVENT DATE: 20180330
